FAERS Safety Report 10914777 (Version 1)
Quarter: 2015Q1

REPORT INFORMATION
  Report Type: Report from Study
  Country: US (occurrence: US)
  Receive Date: 20150313
  Receipt Date: 20150313
  Transmission Date: 20150721
  Serious: Yes (Hospitalization, Other)
  Sender: FDA-Public Use
  Company Number: US-GILEAD-2015-0140896

PATIENT
  Age: 66 Year
  Sex: Male

DRUGS (1)
  1. LEDIPASVIR/SOFOSBUVIR [Suspect]
     Active Substance: LEDIPASVIR\SOFOSBUVIR
     Indication: CHRONIC HEPATITIS C
     Dosage: 1 DF, UNK
     Route: 048
     Dates: start: 20141213

REACTIONS (6)
  - Limb injury [Unknown]
  - Hypertension [Unknown]
  - Arthritis infective [Unknown]
  - Renal disorder [Unknown]
  - Hypothyroidism [Unknown]
  - Arthritis [Unknown]
